FAERS Safety Report 15363551 (Version 1)
Quarter: 2018Q3

REPORT INFORMATION
  Report Type: Report from Study
  Country: US (occurrence: US)
  Receive Date: 20180907
  Receipt Date: 20180907
  Transmission Date: 20181010
  Serious: Yes (Disabling, Other)
  Sender: FDA-Public Use
  Company Number: US-JAZZ-2018-US-004558

PATIENT
  Sex: Male

DRUGS (21)
  1. TRILEPTAL [Concomitant]
     Active Substance: OXCARBAZEPINE
  2. CITALOPRAM HYDROBROMIDE. [Concomitant]
     Active Substance: CITALOPRAM HYDROBROMIDE
  3. POTASSIUM [Concomitant]
     Active Substance: POTASSIUM
  4. SYNTHROID [Concomitant]
     Active Substance: LEVOTHYROXINE SODIUM
  5. CLONIDINE. [Concomitant]
     Active Substance: CLONIDINE
  6. OXYCODONE [Concomitant]
     Active Substance: OXYCODONE
  7. XYREM [Suspect]
     Active Substance: SODIUM OXYBATE
     Dosage: 4.5 G, BID
     Route: 048
     Dates: start: 201704
  8. VALIUM [Concomitant]
     Active Substance: DIAZEPAM
  9. ZANTAC [Concomitant]
     Active Substance: RANITIDINE HYDROCHLORIDE
  10. FISH OIL CONCENTRATE [Concomitant]
     Active Substance: FISH OIL
  11. ADDERALL [Concomitant]
     Active Substance: AMPHETAMINE ASPARTATE\AMPHETAMINE SULFATE\DEXTROAMPHETAMINE SACCHARATE\DEXTROAMPHETAMINE SULFATE
  12. XYREM [Suspect]
     Active Substance: SODIUM OXYBATE
     Dosage: DOSE ADJUSTMENT
     Route: 048
     Dates: start: 201010, end: 201704
  13. REQUIP [Concomitant]
     Active Substance: ROPINIROLE HYDROCHLORIDE
  14. FUROSEMIDE. [Concomitant]
     Active Substance: FUROSEMIDE
  15. ABILIFY [Concomitant]
     Active Substance: ARIPIPRAZOLE
  16. LIPITOR [Concomitant]
     Active Substance: ATORVASTATIN CALCIUM
  17. NEURONTIN [Concomitant]
     Active Substance: GABAPENTIN
  18. NEUPRO [Concomitant]
     Active Substance: ROTIGOTINE
  19. XYREM [Suspect]
     Active Substance: SODIUM OXYBATE
     Indication: NARCOLEPSY
     Dosage: 2.25 G, BID
     Route: 048
     Dates: start: 201009, end: 201010
  20. XANAX [Concomitant]
     Active Substance: ALPRAZOLAM
  21. PROMETHAZINE [Concomitant]
     Active Substance: PROMETHAZINE\PROMETHAZINE HYDROCHLORIDE

REACTIONS (5)
  - Intervertebral disc protrusion [Unknown]
  - Fractured coccyx [Unknown]
  - Blood pressure increased [Unknown]
  - Peripheral swelling [Not Recovered/Not Resolved]
  - Neck injury [Unknown]
